FAERS Safety Report 5479632-8 (Version None)
Quarter: 2007Q4

REPORT INFORMATION
  Report Type: 
  Country: None (occurrence: None)
  Receive Date: 20071008
  Receipt Date: 20071001
  Transmission Date: 20080405
  Serious: Yes (Life-Threatening, Hospitalization, Other)
  Sender: FDA-Public Use
  Company Number: A0682756A

PATIENT
  Age: 26 Year
  Sex: Female
  Weight: 46.8 kg

DRUGS (4)
  1. LAMICTAL [Suspect]
     Indication: DRUG USE FOR UNKNOWN INDICATION
     Route: 048
  2. CARBAMAZEPINE [Concomitant]
     Dosage: 300MG PER DAY
     Route: 048
     Dates: start: 19990101
  3. KEPPRA [Concomitant]
     Dosage: 250MG TWICE PER DAY
     Route: 048
  4. PREVACID [Concomitant]
     Dosage: 30MG PER DAY
     Route: 048

REACTIONS (12)
  - ABDOMINAL PAIN UPPER [None]
  - BACK PAIN [None]
  - DRUG HYPERSENSITIVITY [None]
  - ERYTHEMA [None]
  - FATIGUE [None]
  - HEPATITIS [None]
  - HEPATOTOXICITY [None]
  - NAUSEA [None]
  - POSTNASAL DRIP [None]
  - RASH [None]
  - RESPIRATORY DISORDER [None]
  - VOMITING [None]
